FAERS Safety Report 23602957 (Version 2)
Quarter: 2024Q2

REPORT INFORMATION
  Report Type: Report from Study
  Country: DE (occurrence: DE)
  Receive Date: 20240306
  Receipt Date: 20240424
  Transmission Date: 20240716
  Serious: Yes (Hospitalization)
  Sender: FDA-Public Use
  Company Number: DE-JNJFOC-20240230931

PATIENT
  Sex: Female

DRUGS (5)
  1. DARZALEX [Suspect]
     Active Substance: DARATUMUMAB
     Indication: Product used for unknown indication
     Dosage: THERAPY START DATE: 10/JAN/2024?THERAPY END DATE; 10/JAN/2024?30 DAYS AFTER THERAPY: 09-FEB-2024
     Route: 041
  2. DEXAMETHASONE [Suspect]
     Active Substance: DEXAMETHASONE
     Indication: Product used for unknown indication
     Dosage: THERAPY START DATE: 10-JAN-2024?LAST DATE PRIOR TO SAE: 10-JAN-2024?30 DAYS AFTER THERAPY: 09-FEB-20
     Route: 042
  3. LENALIDOMIDE [Suspect]
     Active Substance: LENALIDOMIDE
     Indication: Product used for unknown indication
     Dosage: THERAPY START DATE: 10-JAN-2024?LAST DATE PRIOR TO SAE: 15-JAN-2024?30 DAYS AFTER THERAPY:14-FEB-202
     Route: 048
  4. THALIDOMIDE [Suspect]
     Active Substance: THALIDOMIDE
     Indication: Product used for unknown indication
     Dosage: THERAPY START DATE: 10-JAN-2024?LAST DATE PRIOR TO SAE: 17-JAN-2024?30 DAYS AFTER THERAPY: 16-FEB-20
     Route: 048
  5. PEMBROLIZUMAB [Concomitant]
     Active Substance: PEMBROLIZUMAB

REACTIONS (1)
  - Malignant melanoma [Recovered/Resolved]

NARRATIVE: CASE EVENT DATE: 20240118
